FAERS Safety Report 8774194 (Version 3)
Quarter: 2013Q2

REPORT INFORMATION
  Report Type: Spontaneous
  Country: US (occurrence: US)
  Receive Date: 20120907
  Receipt Date: 20130628
  Transmission Date: 20140414
  Serious: Yes (Other)
  Sender: FDA-Public Use
  Company Number: US-JNJFOC-20110803112

PATIENT
  Age: 51 Year
  Sex: Male

DRUGS (2)
  1. LEVAQUIN [Suspect]
     Indication: UPPER RESPIRATORY TRACT INFECTION
     Route: 048
  2. PREDNISONE [Suspect]
     Indication: UPPER RESPIRATORY TRACT INFECTION
     Route: 065

REACTIONS (8)
  - Tendon rupture [Recovering/Resolving]
  - Rotator cuff syndrome [Unknown]
  - Epicondylitis [Unknown]
  - Tendon rupture [Recovering/Resolving]
  - Muscle injury [Recovering/Resolving]
  - Tendon rupture [Unknown]
  - Tendon disorder [Unknown]
  - Injury [Unknown]
